FAERS Safety Report 9161115 (Version 1)
Quarter: 2013Q1

REPORT INFORMATION
  Report Type: Spontaneous
  Country: US (occurrence: US)
  Receive Date: 20130313
  Receipt Date: 20130313
  Transmission Date: 20140127
  Serious: Yes (Death, Hospitalization)
  Sender: FDA-Public Use
  Company Number: CHPA2013US004321

PATIENT
  Age: 86 Year
  Sex: Female

DRUGS (11)
  1. EXCEDRIN EXTRA STRENGTH [Suspect]
     Indication: BACK PAIN
     Dosage: UNK, UNK
     Route: 048
  2. EXCEDRIN EXTRA STRENGTH [Suspect]
     Indication: ARTHRITIS
     Dosage: UNK, UNK
     Route: 048
  3. EXCEDRIN EXTRA STRENGTH [Suspect]
     Indication: PAIN IN EXTREMITY
  4. EXCEDRIN ES BACK + BODY [Suspect]
     Indication: BACK PAIN
     Dosage: UNK, UNK
     Route: 048
  5. EXCEDRIN ES BACK + BODY [Suspect]
     Indication: PAIN IN EXTREMITY
     Dosage: UNK, UNK
     Route: 048
  6. EXCEDRIN ES BACK + BODY [Suspect]
     Dosage: UNK, UNK
     Route: 048
  7. EXCEDRIN ES BACK + BODY [Suspect]
     Dosage: UNK, UNK
     Route: 048
  8. EXCEDRIN ES BACK + BODY [Suspect]
     Dosage: UNK, UNK
     Route: 048
  9. EXCEDRIN PM [Suspect]
     Indication: ARTHRITIS
     Dosage: UNK, UNK
     Route: 048
  10. EXCEDRIN PM [Suspect]
     Indication: BACK PAIN
     Dosage: UNK, UNK
  11. EXCEDRIN PM [Suspect]
     Indication: PAIN IN EXTREMITY

REACTIONS (2)
  - Pneumonia [Fatal]
  - Myocardial infarction [Recovered/Resolved]
